FAERS Safety Report 15885377 (Version 1)
Quarter: 2019Q1

REPORT INFORMATION
  Report Type: Spontaneous
  Country: RU (occurrence: RU)
  Receive Date: 20190129
  Receipt Date: 20190129
  Transmission Date: 20190417
  Serious: Yes (Other)
  Sender: FDA-Public Use
  Company Number: PHHY2019RU019494

PATIENT
  Age: 30 Year
  Sex: Male
  Weight: 84 kg

DRUGS (6)
  1. SUPRASTIN [Suspect]
     Active Substance: CHLOROPYRAMINE HYDROCHLORIDE
     Indication: SINUSITIS
     Dosage: UNK
     Route: 048
     Dates: start: 20181208, end: 20181222
  2. DE NOL [Concomitant]
     Indication: GASTROOESOPHAGEAL REFLUX DISEASE
     Dosage: UNK
     Route: 048
     Dates: start: 20181226
  3. AMOKSIKLAV [Suspect]
     Active Substance: AMOXICILLIN\CLAVULANATE POTASSIUM
     Indication: SINUSITIS
     Dosage: UNK
     Route: 048
     Dates: start: 20181208, end: 20181222
  4. OMEPRAZOLE. [Concomitant]
     Active Substance: OMEPRAZOLE
     Indication: GASTROOESOPHAGEAL REFLUX DISEASE
     Dosage: UNK
     Route: 048
     Dates: start: 20181226
  5. KETOROL [Concomitant]
     Active Substance: KETOROLAC TROMETHAMINE
     Indication: SINUSITIS
     Dosage: UNK
     Route: 065
     Dates: start: 20181208, end: 20181222
  6. NIMESIL [Suspect]
     Active Substance: NIMESULIDE
     Indication: SINUSITIS
     Dosage: UNK
     Route: 048
     Dates: start: 20181208, end: 20181222

REACTIONS (2)
  - Drug-induced liver injury [Recovering/Resolving]
  - Cholestasis [Recovering/Resolving]

NARRATIVE: CASE EVENT DATE: 20181222
